FAERS Safety Report 10161594 (Version 1)
Quarter: 2014Q2

REPORT INFORMATION
  Report Type: Spontaneous
  Country: US (occurrence: US)
  Receive Date: 20140509
  Receipt Date: 20140509
  Transmission Date: 20141212
  Serious: No
  Sender: FDA-Public Use
  Company Number: US-009507513-1405USA001642

PATIENT
  Sex: Female

DRUGS (3)
  1. NEXPLANON [Suspect]
     Dosage: UNK
     Route: 059
  2. NEXPLANON [Suspect]
     Dosage: UNK
     Route: 059
  3. NEXPLANON [Suspect]
     Dosage: UNK
     Route: 059

REACTIONS (3)
  - Adverse event [Unknown]
  - Device kink [Unknown]
  - Device kink [Unknown]
